FAERS Safety Report 19721663 (Version 2)
Quarter: 2021Q3

REPORT INFORMATION
  Report Type: Spontaneous
  Country: US (occurrence: US)
  Receive Date: 20210818
  Receipt Date: 20210906
  Transmission Date: 20211014
  Serious: No
  Sender: FDA-Public Use
  Company Number: US-B.BRAUN MEDICAL INC.-2115306

PATIENT
  Age: 32 Year
  Sex: Male
  Weight: 145.45 kg

DRUGS (10)
  1. ALBUTEROL. [Concomitant]
     Active Substance: ALBUTEROL
  2. HYDROCHLOROTHIAZIDE. [Suspect]
     Active Substance: HYDROCHLOROTHIAZIDE
  3. CEFOXITIN AND DEXTROSE [Suspect]
     Active Substance: CEFOXITIN SODIUM
     Indication: MYCOBACTERIAL INFECTION
     Route: 042
  4. OMEPRAZOLE. [Concomitant]
     Active Substance: OMEPRAZOLE
  5. AZELASTINE NASAL SPRAY [Concomitant]
     Active Substance: AZELASTINE
  6. NUZYRA [Concomitant]
     Active Substance: OMADACYCLINE
  7. SIVEXTRO [Concomitant]
     Active Substance: TEDIZOLID PHOSPHATE
     Dates: start: 20210522
  8. MONTELUKAST [Concomitant]
     Active Substance: MONTELUKAST SODIUM
  9. LISINOPRIL. [Concomitant]
     Active Substance: LISINOPRIL
  10. COVID?19 VACCINE ? UNSPECIFIED [Concomitant]

REACTIONS (4)
  - Pruritus [None]
  - Rash [None]
  - Hepatic enzyme increased [None]
  - Drug hypersensitivity [None]
